FAERS Safety Report 6456864-3 (Version None)
Quarter: 2009Q4

REPORT INFORMATION
  Report Type: 
  Country: None (occurrence: None)
  Receive Date: 20091125
  Receipt Date: 20091116
  Transmission Date: 20100525
  Serious: Yes (Hospitalization)
  Sender: FDA-Public Use
  Company Number: US-PFIZER INC-2009299009

PATIENT
  Sex: Male
  Weight: 78.6 kg

DRUGS (19)
  1. IRINOTECAN HCL [Suspect]
     Indication: COLON CANCER
     Dosage: 285 MG, 1IN 2 WEEKS
     Route: 042
     Dates: start: 20091006, end: 20091020
  2. IMC-A12 [Suspect]
     Indication: COLON CANCER
     Dosage: 784.7 MG, ONCE
     Route: 042
     Dates: start: 20091006, end: 20091006
  3. CETUXIMAB [Suspect]
     Indication: COLON CANCER
     Dosage: 950 MG, ONCE
     Route: 042
     Dates: start: 20091006, end: 20091006
  4. LISINOPRIL [Concomitant]
     Indication: HYPERTENSION
     Dosage: UNK
  5. GLIPIZIDE [Concomitant]
     Indication: TYPE 2 DIABETES MELLITUS
     Dosage: 10 MG, 2X/DAY
     Route: 048
  6. METFORMIN [Concomitant]
     Indication: TYPE 2 DIABETES MELLITUS
     Dosage: 1000 MG, 2X/DAY
     Route: 048
  7. METOCLOPRAMIDE [Concomitant]
     Dosage: 10 MG, AT BEDTIME
     Route: 048
  8. PROCHLORPERAZINE [Concomitant]
     Indication: NAUSEA
     Dosage: 25 MG, EVERY 6HR  AS NEEDED
     Route: 054
  9. PROCHLORPERAZINE [Concomitant]
     Indication: VOMITING
  10. METRONIDAZOLE [Concomitant]
     Dosage: 500 MG, 3X/DAY
     Route: 048
  11. CLINDAMYCIN PHOSPHATE [Concomitant]
     Dosage: APPLY B.I.D TO AFFECTED AREA
     Route: 061
  12. SIMETHICONE [Concomitant]
     Dosage: 80 MG, AS DIRECTED
     Route: 048
  13. DRONABINOL [Concomitant]
     Dosage: 2.5 MG, 2X/DAY
     Route: 048
  14. GALENIC /PARACETAMOL/CODEINE/ [Concomitant]
     Indication: PAIN
     Dosage: 300/30 MG,1-2 TABS Q6H
     Route: 048
  15. ONDANSETRON HYDROCHLORIDE [Concomitant]
     Indication: CHEMOTHERAPY
     Dosage: 8 MG, 2X/DAY
     Route: 048
  16. OMEPRAZOLE [Concomitant]
     Dosage: 20 MG, 1X/DAY
     Route: 048
  17. HEPARIN SODIUM [Concomitant]
     Dosage: QD
     Route: 042
  18. LEVITRA [Concomitant]
     Dosage: 10 MG, AS NEEDED
     Route: 048
  19. FLUOXETINE [Concomitant]
     Dosage: 10 MG, 1X/DAY
     Route: 048

REACTIONS (2)
  - BLOOD CREATININE INCREASED [None]
  - BLOOD POTASSIUM INCREASED [None]
